FAERS Safety Report 5724704-3 (Version None)
Quarter: 2008Q2

REPORT INFORMATION
  Report Type: 
  Country: None (occurrence: None)
  Receive Date: 20080501
  Receipt Date: 20080423
  Transmission Date: 20081010
  Serious: Yes (Other)
  Sender: FDA-Public Use
  Company Number: US-ROCHE-501914

PATIENT
  Sex: Male
  Weight: 65.3 kg

DRUGS (3)
  1. ACCUTANE [Suspect]
     Indication: ACNE
     Route: 065
     Dates: start: 20001101, end: 20010201
  2. ACCUTANE [Suspect]
     Route: 065
     Dates: start: 20011001, end: 20020101
  3. ADVIL [Concomitant]
     Dosage: HE WAS TAKING ADVIL ONCE A MONTH.

REACTIONS (7)
  - ABDOMINAL PAIN [None]
  - CROHN'S DISEASE [None]
  - GASTRITIS [None]
  - INFLAMMATORY BOWEL DISEASE [None]
  - OESOPHAGEAL DISORDER [None]
  - PANCREATITIS [None]
  - VISUAL DISTURBANCE [None]
